FAERS Safety Report 18398985 (Version 2)
Quarter: 2020Q4

REPORT INFORMATION
  Report Type: Report from Study
  Country: BR (occurrence: BR)
  Receive Date: 20201019
  Receipt Date: 20201104
  Transmission Date: 20210114
  Serious: Yes (Hospitalization)
  Sender: FDA-Public Use
  Company Number: BR-BRISTOL-MYERS SQUIBB COMPANY-BMS-2020-078832

PATIENT
  Age: 76 Year
  Sex: Female

DRUGS (1)
  1. ABATACEPT [Suspect]
     Active Substance: ABATACEPT
     Indication: RHEUMATOID ARTHRITIS
     Dosage: 250 MILLIGRAM (3 VIALS), Q4WK
     Route: 065
     Dates: end: 202008

REACTIONS (2)
  - COVID-19 [Recovered/Resolved]
  - Gastric disorder [Unknown]

NARRATIVE: CASE EVENT DATE: 202009
